FAERS Safety Report 16844938 (Version 1)
Quarter: 2019Q3

REPORT INFORMATION
  Report Type: Spontaneous
  Country: US (occurrence: US)
  Receive Date: 20190924
  Receipt Date: 20190924
  Transmission Date: 20191005
  Serious: No
  Sender: FDA-Public Use
  Company Number: US-PFIZER INC-2019409198

PATIENT
  Sex: Male

DRUGS (3)
  1. ATORVASTATIN CALCIUM. [Suspect]
     Active Substance: ATORVASTATIN CALCIUM
     Dosage: UNK
  2. VERAPAMIL HCL [Suspect]
     Active Substance: VERAPAMIL HYDROCHLORIDE
     Dosage: UNK UNK, 1X/DAY
     Route: 048
     Dates: start: 20190917
  3. ZYVOX [Suspect]
     Active Substance: LINEZOLID
     Dosage: UNK UNK, 1X/DAY [FIRST DOSE LAST NIGHT, AND TOOK SECOND DOSE THIS MORNING]

REACTIONS (2)
  - Product administration error [Unknown]
  - Foreign body in respiratory tract [Unknown]
